FAERS Safety Report 9132858 (Version 2)
Quarter: 2013Q2

REPORT INFORMATION
  Report Type: Report from Study
  Country: NL (occurrence: NL)
  Receive Date: 20130301
  Receipt Date: 20130501
  Transmission Date: 20140414
  Serious: Yes (Death, Life-Threatening, Hospitalization)
  Sender: FDA-Public Use
  Company Number: NL-AMGEN-NLDCT2013014269

PATIENT
  Age: 75 Year
  Sex: Male
  Weight: 61 kg

DRUGS (11)
  1. PEGFILGRASTIM [Suspect]
     Indication: DIFFUSE LARGE B-CELL LYMPHOMA
     Dosage: 6 MG, UNK
     Route: 058
     Dates: start: 20111221
  2. RITUXIMAB [Concomitant]
     Indication: DIFFUSE LARGE B-CELL LYMPHOMA
     Dosage: 650 MG, UNK
     Route: 042
     Dates: start: 20111220
  3. PREDNISONE [Concomitant]
     Indication: DIFFUSE LARGE B-CELL LYMPHOMA
     Dosage: 100 MG, UNK
     Route: 048
     Dates: start: 20111220
  4. CYCLOPHOSPHAMIDE [Concomitant]
     Indication: DIFFUSE LARGE B-CELL LYMPHOMA
     Dosage: 1400 MG, UNK
     Route: 042
     Dates: start: 20111220
  5. DOXORUBICIN [Concomitant]
     Indication: DIFFUSE LARGE B-CELL LYMPHOMA
     Dosage: 95 MG, UNK
     Route: 042
     Dates: start: 20111220
  6. VINCRISTINE [Concomitant]
     Indication: DIFFUSE LARGE B-CELL LYMPHOMA
     Dosage: 2 MG, UNK
     Route: 042
     Dates: start: 20111220
  7. PARACETAMOL [Concomitant]
     Indication: PAIN
     Dosage: UNK UNK, AS NECESSARY
     Dates: start: 20111115, end: 20111230
  8. COLCHICINE [Concomitant]
     Indication: GOUT
     Dosage: 0.5 MG, UNK
     Route: 048
     Dates: start: 2011, end: 20111230
  9. PANTOPRAZOLE [Concomitant]
     Dosage: 40 MG, UNK
     Route: 048
     Dates: start: 2011, end: 20111230
  10. MOVICOLON [Concomitant]
     Indication: CONSTIPATION
     Dosage: UNK
     Route: 048
     Dates: start: 20110126
  11. OXAZEPAM [Concomitant]
     Indication: SEDATION
     Dosage: 10 MG, UNK
     Route: 048
     Dates: start: 20120126

REACTIONS (2)
  - Pulmonary embolism [Recovered/Resolved]
  - Pneumonia [Fatal]
